FAERS Safety Report 8134502-1 (Version None)
Quarter: 2012Q1

REPORT INFORMATION
  Report Type: 
  Country: None (occurrence: None)
  Receive Date: 20120214
  Receipt Date: 20120209
  Transmission Date: 20120608
  Serious: No
  Sender: FDA-Public Use
  Company Number: US-PFIZER INC-2012035899

PATIENT
  Sex: Male
  Weight: 64.4 kg

DRUGS (17)
  1. SUTENT [Suspect]
     Dosage: 50 MG, AS DIRECTED
  2. ALLOPURINOL [Concomitant]
     Dosage: 100 MG, UNK
  3. REGLAN [Concomitant]
     Dosage: 10 MG, UNK
  4. DIGOXIN [Concomitant]
     Dosage: 0.25 MG, UNK
  5. PRILOSEC [Concomitant]
     Dosage: 20 MG, UNK
  6. ZOLOFT [Concomitant]
     Dosage: 50 MG, UNK
  7. CALCIUM CARBONATE [Concomitant]
     Dosage: UNK
  8. ZOCOR [Concomitant]
     Dosage: 40 MG, UNK
  9. POTASSIUM [Concomitant]
     Dosage: 25 MEQ EF
  10. FLUDROCORTISONE [Concomitant]
     Dosage: 0.1 MG, UNK
  11. GEMFIBROZIL [Concomitant]
     Dosage: 600 MG, UNK
  12. SPIRIVA [Concomitant]
  13. ACTOS [Concomitant]
     Dosage: 30 MG, UNK
  14. FUROSEMIDE [Concomitant]
     Dosage: 20 MG, UNK
  15. ADVAIR DISKUS 100/50 [Concomitant]
     Dosage: 250/50
  16. UROXATRAL [Concomitant]
     Dosage: 10 MG, UNK
  17. PRADAXA [Concomitant]
     Dosage: 150 MG, UNK

REACTIONS (1)
  - SOMNOLENCE [None]
